FAERS Safety Report 6588917-3 (Version None)
Quarter: 2010Q1

REPORT INFORMATION
  Report Type: 
  Country: None (occurrence: None)
  Receive Date: 20100218
  Receipt Date: 20100212
  Transmission Date: 20100710
  Serious: Yes (Hospitalization)
  Sender: FDA-Public Use
  Company Number: IN-BRISTOL-MYERS SQUIBB COMPANY-14976666

PATIENT
  Age: 79 Year
  Sex: Male

DRUGS (9)
  1. CARBOPLATIN [Suspect]
     Indication: NON-SMALL CELL LUNG CANCER
     Route: 042
     Dates: start: 20090822, end: 20100106
  2. PACLITAXEL [Suspect]
     Indication: NON-SMALL CELL LUNG CANCER
     Route: 042
     Dates: start: 20090822, end: 20100106
  3. CP-751,871 [Suspect]
     Indication: NON-SMALL CELL LUNG CANCER
     Route: 042
     Dates: start: 20090822, end: 20100106
  4. CYPROHEPTADINE HCL [Concomitant]
     Indication: INCREASED APPETITE
     Dosage: SYRUP
     Dates: start: 20091215
  5. DOMSTAL [Concomitant]
     Indication: PROPHYLAXIS OF NAUSEA AND VOMITING
     Route: 048
     Dates: start: 20091215, end: 20091226
  6. BECOSULES [Concomitant]
     Indication: MEDICAL DIET
     Dosage: SYRUP
     Route: 048
     Dates: start: 20091215, end: 20091226
  7. ZOFER [Concomitant]
     Indication: PROPHYLAXIS OF NAUSEA AND VOMITING
     Dosage: TABS
     Route: 048
     Dates: start: 20091224, end: 20091226
  8. PROTEIN SUPPLEMENT [Concomitant]
     Dosage: 2 TABLE SPOON FULL
     Dates: start: 20091215, end: 20091226
  9. TPN [Concomitant]

REACTIONS (3)
  - ASTHENIA [None]
  - VERTIGO [None]
  - VOMITING [None]
